FAERS Safety Report 5483965-9 (Version None)
Quarter: 2007Q4

REPORT INFORMATION
  Report Type: 
  Country: None (occurrence: None)
  Receive Date: 20071012
  Receipt Date: 20071003
  Transmission Date: 20080405
  Serious: Yes (Other)
  Sender: FDA-Public Use
  Company Number: CH-ROCHE-523301

PATIENT
  Age: 25 Year
  Sex: Female

DRUGS (3)
  1. PEGASYS [Suspect]
     Indication: DRUG USE FOR UNKNOWN INDICATION
     Route: 065
  2. PEGASYS [Suspect]
     Dosage: DOSE REDUCED.
     Route: 065
  3. PEGASYS [Suspect]
     Dosage: DOSE REDUCED.
     Route: 065

REACTIONS (2)
  - FISTULA [None]
  - NEUTROPENIA [None]
